FAERS Safety Report 7804562-3 (Version None)
Quarter: 2011Q4

REPORT INFORMATION
  Report Type: 
  Country: None (occurrence: None)
  Receive Date: 20111010
  Receipt Date: 20111003
  Transmission Date: 20120403
  Serious: Yes (Hospitalization, Disabling, Other)
  Sender: FDA-Public Use
  Company Number: US-B.I. PHARMACEUTICALS,INC./RIDGEFIELD-2011-BP-13838BP

PATIENT
  Sex: Female
  Weight: 81.8 kg

DRUGS (4)
  1. ASPIRIN [Concomitant]
     Route: 048
  2. FOSAMAX [Concomitant]
     Dosage: 150 MG
  3. DOXYCYCLINE [Concomitant]
     Dosage: 200 MG
  4. PRADAXA [Suspect]
     Indication: TRANSIENT ISCHAEMIC ATTACK
     Dosage: 150 MG
     Dates: start: 20110510, end: 20110514

REACTIONS (1)
  - CEREBROVASCULAR ACCIDENT [None]
